FAERS Safety Report 7364581-0 (Version None)
Quarter: 2011Q1

REPORT INFORMATION
  Report Type: 
  Country: None (occurrence: None)
  Receive Date: 20110321
  Receipt Date: 20110315
  Transmission Date: 20110831
  Serious: Yes (Other)
  Sender: FDA-Public Use
  Company Number: US-PFIZER INC-2011057870

PATIENT
  Sex: Female
  Weight: 74.83 kg

DRUGS (5)
  1. NICOTINE POLACRILEX [Interacting]
     Indication: SMOKING CESSATION THERAPY
     Dosage: 4 MG, 10-15 PIECES DAILY
     Route: 002
     Dates: start: 20100701, end: 20110225
  2. ADVIL PM [Suspect]
     Indication: SLEEP DISORDER
     Dosage: UNK, AS NEEDED
     Route: 048
     Dates: end: 20110211
  3. LISINOPRIL [Interacting]
     Indication: BLOOD PRESSURE
     Dosage: UNK
     Route: 048
     Dates: end: 20110211
  4. LOVASTATIN [Interacting]
     Indication: BLOOD CHOLESTEROL INCREASED
     Dosage: UNK, 1X/DAY
     Route: 048
     Dates: end: 20110211
  5. MUSCLE RELAXANTS [Interacting]
     Dosage: UNK, USED FOR THREE DAYS
     Route: 048
     Dates: start: 20110201, end: 20110201

REACTIONS (5)
  - DRUG HYPERSENSITIVITY [None]
  - DRUG INTERACTION [None]
  - LIP SWELLING [None]
  - SWELLING FACE [None]
  - OEDEMA MOUTH [None]
